FAERS Safety Report 16102252 (Version 10)
Quarter: 2020Q2

REPORT INFORMATION
  Report Type: Report from Study
  Country: US (occurrence: US)
  Receive Date: 20190321
  Receipt Date: 20200630
  Transmission Date: 20200713
  Serious: Yes (Hospitalization)
  Sender: FDA-Public Use
  Company Number: US-ACTELION-A-NJ2019-187566

PATIENT
  Age: 75 Year
  Sex: Male

DRUGS (4)
  1. ORENITRAM [Suspect]
     Active Substance: TREPROSTINIL
     Indication: PRODUCT USED FOR UNKNOWN INDICATION
     Dosage: 2 MG, TID
     Route: 065
     Dates: start: 20190329
  2. TADALAFIL. [Concomitant]
     Active Substance: TADALAFIL
  3. OPSUMIT [Suspect]
     Active Substance: MACITENTAN
     Indication: PULMONARY ARTERIAL HYPERTENSION
     Dosage: 10 MG, QD
     Route: 048
     Dates: start: 20190227
  4. ORENITRAM [Suspect]
     Active Substance: TREPROSTINIL
     Dosage: 2 MG
     Route: 065
     Dates: start: 20190409

REACTIONS (9)
  - Pain in extremity [Unknown]
  - Dyspnoea [Unknown]
  - Pain in jaw [Not Recovered/Not Resolved]
  - Nerve compression [Not Recovered/Not Resolved]
  - Headache [Not Recovered/Not Resolved]
  - Pneumonia [Unknown]
  - Hypoaesthesia [Not Recovered/Not Resolved]
  - Flushing [Not Recovered/Not Resolved]
  - Sinus congestion [Unknown]

NARRATIVE: CASE EVENT DATE: 201902
